FAERS Safety Report 12761939 (Version 1)
Quarter: 2016Q3

REPORT INFORMATION
  Report Type: Spontaneous
  Country: US (occurrence: US)
  Receive Date: 20160920
  Receipt Date: 20160920
  Transmission Date: 20161109
  Serious: Yes (Hospitalization, Other)
  Sender: FDA-Public Use
  Company Number: US-APOTEX-2016AP011582

PATIENT
  Age: 37 Week
  Sex: Female
  Weight: 1.9 kg

DRUGS (3)
  1. TIMOLOL MALEATE OPHTHALMIC SOLUTION USP [Suspect]
     Active Substance: TIMOLOL MALEATE
     Indication: EYELID PTOSIS
     Dosage: 0.52 MG/KG/DAY ONE DROP ON THE EYELID; ADDITIONAL DROP AFTER 7 DAYS
     Route: 061
  2. TIMOLOL MALEATE OPHTHALMIC SOLUTION USP [Suspect]
     Active Substance: TIMOLOL MALEATE
     Indication: ULCERATED HAEMANGIOMA
  3. TIMOLOL MALEATE OPHTHALMIC SOLUTION USP [Suspect]
     Active Substance: TIMOLOL MALEATE
     Indication: RETINAL VEIN OCCLUSION
     Dosage: 0.52 MG/KG/DAY ONE DROP
     Route: 031

REACTIONS (4)
  - Bradycardia [Unknown]
  - Lethargy [Unknown]
  - Hypothermia [Recovered/Resolved]
  - Off label use [Unknown]
